FAERS Safety Report 7266703-9 (Version None)
Quarter: 2011Q1

REPORT INFORMATION
  Report Type: 
  Country: None (occurrence: None)
  Receive Date: 20110201
  Receipt Date: 20110120
  Transmission Date: 20110831
  Serious: Yes (Hospitalization)
  Sender: FDA-Public Use
  Company Number: US-BIOGENIDEC-2010BI011798

PATIENT
  Age: 47 Year
  Sex: Female
  Weight: 117 kg

DRUGS (2)
  1. TYSABRI [Suspect]
     Indication: MULTIPLE SCLEROSIS
     Route: 042
     Dates: start: 20090506, end: 20100118
  2. TYSABRI [Suspect]
     Route: 042
     Dates: start: 20100920

REACTIONS (3)
  - DYSPNOEA [None]
  - VOCAL CORD DISORDER [None]
  - MULTIPLE SCLEROSIS RELAPSE [None]
